FAERS Safety Report 13465585 (Version 1)
Quarter: 2017Q2

REPORT INFORMATION
  Report Type: Spontaneous
  Country: US (occurrence: US)
  Receive Date: 20170420
  Receipt Date: 20170420
  Transmission Date: 20170830
  Serious: Yes (Other)
  Sender: FDA-Public Use
  Company Number: None

PATIENT
  Age: 50 Year
  Sex: Female

DRUGS (1)
  1. IBRANCE [Suspect]
     Active Substance: PALBOCICLIB
     Indication: BREAST CANCER FEMALE
     Dosage: 75MG (1 CAPSULE) ONCE DAILY FOR 14 DAYS ON AND 14 DAYS OFF BY MOUTH
     Route: 048
     Dates: start: 20160819

REACTIONS (4)
  - Swelling [None]
  - Peripheral swelling [None]
  - Pruritus [None]
  - Lip swelling [None]

NARRATIVE: CASE EVENT DATE: 20170419
